FAERS Safety Report 13106600 (Version 2)
Quarter: 2017Q4

REPORT INFORMATION
  Report Type: Spontaneous
  Country: US (occurrence: US)
  Receive Date: 20170111
  Receipt Date: 20171010
  Transmission Date: 20180320
  Serious: Yes (Hospitalization, Other)
  Sender: FDA-Public Use
  Company Number: US-TEVA-728481USA

PATIENT
  Age: 18 Year
  Sex: Female

DRUGS (3)
  1. 4 FLUOROAMPHETAMINE [Suspect]
     Active Substance: 4-FLUOROAMPHETAMINE
     Route: 065
  2. METHYLPHENIDATE. [Suspect]
     Active Substance: METHYLPHENIDATE
     Indication: DRUG USE DISORDER
     Route: 065
  3. MODAFINIL. [Suspect]
     Active Substance: MODAFINIL
     Indication: DRUG USE DISORDER
     Route: 048

REACTIONS (3)
  - Cardiomyopathy [Unknown]
  - Congestive cardiomyopathy [Unknown]
  - Drug abuse [Unknown]
